FAERS Safety Report 19697088 (Version 1)
Quarter: 2021Q3

REPORT INFORMATION
  Report Type: Spontaneous
  Country: US (occurrence: US)
  Receive Date: 20210813
  Receipt Date: 20210813
  Transmission Date: 20211014
  Serious: Yes (Death, Other)
  Sender: FDA-Public Use
  Company Number: US-AMGEN-USASP2021124147

PATIENT

DRUGS (1)
  1. TALIMOGENE LAHERPAREPVEC [Suspect]
     Active Substance: TALIMOGENE LAHERPAREPVEC
     Indication: METASTATIC MALIGNANT MELANOMA
     Dosage: UNK (AVERAGE DOSE? 3.47 ML )
     Route: 065

REACTIONS (4)
  - Melanoma recurrent [Unknown]
  - Therapeutic product effect incomplete [Unknown]
  - Death [Fatal]
  - Off label use [Unknown]
